FAERS Safety Report 20437352 (Version 4)
Quarter: 2022Q3

REPORT INFORMATION
  Report Type: Spontaneous
  Country: PL (occurrence: PL)
  Receive Date: 20220207
  Receipt Date: 20220714
  Transmission Date: 20221027
  Serious: No
  Sender: FDA-Public Use
  Company Number: PL-009507513-2202POL000902

PATIENT
  Age: 67 Year
  Sex: Female
  Weight: 78 kg

DRUGS (11)
  1. PEMBROLIZUMAB [Suspect]
     Active Substance: PEMBROLIZUMAB
     Indication: Metastatic malignant melanoma
     Dosage: 2 MILLIGRAM/KILOGRAM BODY WEIGHT
     Dates: start: 20170804
  2. PEMBROLIZUMAB [Suspect]
     Active Substance: PEMBROLIZUMAB
     Dosage: 5TH INFUSION
     Dates: start: 20171106
  3. PEMBROLIZUMAB [Suspect]
     Active Substance: PEMBROLIZUMAB
     Dosage: 9TH INFUSION
     Dates: start: 20180205
  4. PEMBROLIZUMAB [Suspect]
     Active Substance: PEMBROLIZUMAB
     Dosage: 110 MILLIGRAM; 11TH INFUSION
     Dates: start: 20180319
  5. PEMBROLIZUMAB [Suspect]
     Active Substance: PEMBROLIZUMAB
     Dosage: 14TH COURSE
     Dates: start: 20180528
  6. PEMBROLIZUMAB [Suspect]
     Active Substance: PEMBROLIZUMAB
     Dosage: 15TH COURSE
     Dates: start: 20180618
  7. PEMBROLIZUMAB [Suspect]
     Active Substance: PEMBROLIZUMAB
     Dosage: 18TH COURSE
     Dates: start: 20180820
  8. PEMBROLIZUMAB [Suspect]
     Active Substance: PEMBROLIZUMAB
     Dosage: FIXED DOSE OF 200 MG; 19TH COURSE
     Route: 042
     Dates: start: 2018
  9. PEMBROLIZUMAB [Suspect]
     Active Substance: PEMBROLIZUMAB
     Dosage: FIXED DOSE OF 200 MG; 23TH COURSE
     Route: 042
     Dates: start: 20181203
  10. MIRTAZAPINE [Concomitant]
     Active Substance: MIRTAZAPINE
     Indication: Insomnia
     Dosage: UNK
  11. BUPRENORPHINE [Concomitant]
     Active Substance: BUPRENORPHINE
     Indication: Pain
     Dosage: UNK

REACTIONS (2)
  - Dry skin [Unknown]
  - Fatigue [Unknown]
